FAERS Safety Report 9952263 (Version 2)
Quarter: 2014Q1

REPORT INFORMATION
  Report Type: Spontaneous
  Country: US (occurrence: US)
  Receive Date: 20140304
  Receipt Date: 20140328
  Transmission Date: 20141002
  Serious: Yes (Disabling, Other)
  Sender: FDA-Public Use
  Company Number: US-JNJFOC-20140200982

PATIENT
  Age: 34 Year
  Sex: Female
  Weight: 123 kg

DRUGS (4)
  1. STELARA [Suspect]
     Indication: PSORIASIS
     Route: 058
     Dates: start: 20121016, end: 20131108
  2. XANAX [Concomitant]
     Route: 065
  3. BIRTH CONTROL PILL [Concomitant]
     Route: 065
  4. OMEPRAZOLE [Concomitant]
     Route: 065

REACTIONS (6)
  - Hepatic lesion [Not Recovered/Not Resolved]
  - Abdominal pain [Not Recovered/Not Resolved]
  - Nausea [Not Recovered/Not Resolved]
  - Vertigo [Not Recovered/Not Resolved]
  - Dizziness [Not Recovered/Not Resolved]
  - Headache [Not Recovered/Not Resolved]
